FAERS Safety Report 7508149-1 (Version None)
Quarter: 2011Q2

REPORT INFORMATION
  Report Type: 
  Country: None (occurrence: None)
  Receive Date: 20110527
  Receipt Date: 20110519
  Transmission Date: 20111010
  Serious: Yes (Hospitalization, Other)
  Sender: FDA-Public Use
  Company Number: US-BAYER-200932354NA

PATIENT
  Age: 63 Year
  Sex: Male

DRUGS (2)
  1. NEXAVAR [Suspect]
     Dosage: 200 MG, BID
     Route: 048
     Dates: start: 20090101
  2. NEXAVAR [Suspect]
     Indication: THYROID CANCER
     Route: 048
     Dates: start: 20090828

REACTIONS (8)
  - FATIGUE [None]
  - STOMATITIS [None]
  - DEHYDRATION [None]
  - DIARRHOEA [None]
  - SKIN REACTION [None]
  - ORAL PAIN [None]
  - ORAL CANDIDIASIS [None]
  - MYELODYSPLASTIC SYNDROME [None]
